FAERS Safety Report 20546667 (Version 3)
Quarter: 2022Q1

REPORT INFORMATION
  Report Type: Report from Study
  Country: US (occurrence: US)
  Receive Date: 20220303
  Receipt Date: 20220317
  Transmission Date: 20220423
  Serious: Yes (Death, Hospitalization, Other)
  Sender: FDA-Public Use
  Company Number: US-NOVARTISPH-NVSC2022US048357

PATIENT
  Age: 19 Year
  Sex: Female
  Weight: 41.5 kg

DRUGS (3)
  1. LAMPRENE [Suspect]
     Active Substance: CLOFAZIMINE
     Indication: Mycobacterium abscessus infection
     Dosage: 100 MG
     Route: 048
     Dates: start: 20170505, end: 20220220
  2. ALBENDAZOLE [Suspect]
     Active Substance: ALBENDAZOLE
     Indication: Helminthic infection
     Dosage: 1 DOSAGE FORM, QD FOR 3 DAYS
     Route: 065
     Dates: start: 20220206, end: 20220208
  3. OMADACYCLINE [Suspect]
     Active Substance: OMADACYCLINE
     Indication: Mycobacterium abscessus infection
     Dosage: 300 MG
     Route: 065
     Dates: start: 20200301, end: 20220220

REACTIONS (16)
  - Respiratory failure [Fatal]
  - Pneumomediastinum [Fatal]
  - Circulatory collapse [Fatal]
  - Acute hepatic failure [Not Recovered/Not Resolved]
  - Generalised oedema [Not Recovered/Not Resolved]
  - Hepatic function abnormal [Unknown]
  - Ocular icterus [Unknown]
  - Abdominal discomfort [Unknown]
  - Abdominal distension [Unknown]
  - Jaundice [Unknown]
  - Ascites [Unknown]
  - Coagulopathy [Unknown]
  - Alopecia [Unknown]
  - Influenza virus test positive [Unknown]
  - Lung disorder [Not Recovered/Not Resolved]
  - Pyrexia [Unknown]

NARRATIVE: CASE EVENT DATE: 20220207
